FAERS Safety Report 10912578 (Version 1)
Quarter: 2015Q1

REPORT INFORMATION
  Report Type: Spontaneous
  Country: US (occurrence: US)
  Receive Date: 20150313
  Receipt Date: 20150313
  Transmission Date: 20150721
  Serious: Yes (Other)
  Sender: FDA-Public Use
  Company Number: US-UNITED THERAPEUTICS-UNT-2015-001469

PATIENT
  Sex: Female
  Weight: 74.38 kg

DRUGS (1)
  1. REMODULIN [Suspect]
     Active Substance: TREPROSTINIL
     Indication: PULMONARY HYPERTENSION
     Dosage: 0.0095 ?G/KG, CONTINUING
     Route: 058
     Dates: start: 20051123

REACTIONS (7)
  - Rheumatoid arthritis [Unknown]
  - Infusion site erythema [Unknown]
  - Pain in extremity [Unknown]
  - Chest pain [Unknown]
  - Systemic lupus erythematosus [Unknown]
  - Infusion site oedema [Unknown]
  - Infusion site pain [Unknown]
